FAERS Safety Report 24288089 (Version 1)
Quarter: 2024Q3

REPORT INFORMATION
  Report Type: Spontaneous
  Country: US (occurrence: US)
  Receive Date: 20240905
  Receipt Date: 20240905
  Transmission Date: 20241017
  Serious: Yes (Other)
  Sender: MERCK
  Company Number: US-009507513-2409USA001840

PATIENT
  Sex: Male

DRUGS (1)
  1. KEYTRUDA [Suspect]
     Active Substance: PEMBROLIZUMAB
     Indication: Colon cancer
     Dosage: (CYCLE OR DOSE NUMBER 32)
     Route: 042

REACTIONS (4)
  - Pneumonitis [Unknown]
  - Lung opacity [Unknown]
  - Cough [Unknown]
  - Dyspnoea [Unknown]
